FAERS Safety Report 9311411 (Version 1)
Quarter: 2013Q1

REPORT INFORMATION
  Report Type: Spontaneous
  Country: BR (occurrence: None)
  Receive Date: 20130208
  Receipt Date: 20130208
  Transmission Date: 20140127
  Serious: Yes (Hospitalization)
  Sender: FDA-Public Use
  Company Number: AMLO20130003

PATIENT
  Age: 18 Year
  Sex: Male

DRUGS (3)
  1. AMLODIPINE [Suspect]
     Indication: SUICIDE ATTEMPT
     Dosage: 150 MG, 30 IN 1 D, ORAL
     Route: 048
  2. HYDROCHLOROTHIAZIDE TABLETS 25MG [Concomitant]
  3. FLUNARIZINE (FLUNARIZINE) (10 MILLIGRAM, TABLETS) [Concomitant]

REACTIONS (17)
  - Dizziness [None]
  - Vertigo [None]
  - Headache [None]
  - Paraesthesia [None]
  - Hypotension [None]
  - Bradycardia [None]
  - Tachypnoea [None]
  - Oxygen saturation decreased [None]
  - Blood glucose increased [None]
  - Blood calcium decreased [None]
  - Blood creatinine increased [None]
  - Blood urea increased [None]
  - Blood pH decreased [None]
  - Atrioventricular block [None]
  - Anuria [None]
  - Bundle branch block left [None]
  - Acute pulmonary oedema [None]
